FAERS Safety Report 22773335 (Version 11)
Quarter: 2023Q4

REPORT INFORMATION
  Report Type: Report from Study
  Country: US (occurrence: US)
  Receive Date: 20230801
  Receipt Date: 20231226
  Transmission Date: 20240109
  Serious: No
  Sender: FDA-Public Use
  Company Number: US-002147023-NVSC2023US167282

PATIENT
  Age: 32 Year
  Sex: Female

DRUGS (8)
  1. KESIMPTA [Suspect]
     Active Substance: OFATUMUMAB
     Indication: Multiple sclerosis
     Dosage: 0.4 ML, QW
     Route: 058
     Dates: start: 20230716
  2. KESIMPTA [Suspect]
     Active Substance: OFATUMUMAB
     Dosage: 20 MG, QW
     Route: 058
     Dates: start: 20230727
  3. KESIMPTA [Suspect]
     Active Substance: OFATUMUMAB
     Dosage: 20 MG
     Route: 058
     Dates: start: 20230803
  4. KESIMPTA [Suspect]
     Active Substance: OFATUMUMAB
     Dosage: UNK (4TH DOSE)
     Route: 058
  5. BIOTIN [Concomitant]
     Active Substance: BIOTIN
     Indication: Product used for unknown indication
     Dosage: UNK
     Route: 065
  6. ETHINYL ESTRADIOL\NORETHINDRONE ACETATE [Concomitant]
     Active Substance: ETHINYL ESTRADIOL\NORETHINDRONE ACETATE
     Indication: Product used for unknown indication
     Dosage: UNK
     Route: 065
  7. VITAMINS [Concomitant]
     Active Substance: VITAMINS
     Indication: Product used for unknown indication
     Dosage: UNK
     Route: 065
  8. VITAMIN D3 [Concomitant]
     Active Substance: CHOLECALCIFEROL
     Indication: Product used for unknown indication
     Dosage: UNK
     Route: 065

REACTIONS (16)
  - Dysgeusia [Unknown]
  - Pain [Unknown]
  - Pain in extremity [Unknown]
  - Vaginal discharge [Unknown]
  - Polymenorrhoea [Unknown]
  - Acne [Not Recovered/Not Resolved]
  - Fatigue [Unknown]
  - Pyrexia [Unknown]
  - Dyspnoea [Unknown]
  - Arthralgia [Unknown]
  - Urticaria [Unknown]
  - Chills [Unknown]
  - Injection site pain [Unknown]
  - Device leakage [Unknown]
  - Device malfunction [Unknown]
  - Drug dose omission by device [Unknown]

NARRATIVE: CASE EVENT DATE: 20230716
